FAERS Safety Report 20512388 (Version 2)
Quarter: 2022Q3

REPORT INFORMATION
  Report Type: Spontaneous
  Country: FR (occurrence: FR)
  Receive Date: 20220224
  Receipt Date: 20220802
  Transmission Date: 20221027
  Serious: Yes (Other)
  Sender: FDA-Public Use
  Company Number: None

PATIENT
  Age: 30 Year
  Sex: Male

DRUGS (2)
  1. LYRICA [Suspect]
     Active Substance: PREGABALIN
     Dosage: 20 DF (DOSAGE FORM), SINGLE
     Route: 048
     Dates: start: 20210114
  2. RIVOTRIL [Suspect]
     Active Substance: CLONAZEPAM
     Dosage: UNK
     Route: 048
     Dates: start: 20210114

REACTIONS (2)
  - Drug abuse [Not Recovered/Not Resolved]
  - Fall [Recovered/Resolved]

NARRATIVE: CASE EVENT DATE: 20210114
